FAERS Safety Report 19879581 (Version 2)
Quarter: 2021Q4

REPORT INFORMATION
  Report Type: Spontaneous
  Country: PT (occurrence: PT)
  Receive Date: 20210924
  Receipt Date: 20211019
  Transmission Date: 20220303
  Serious: Yes (Other)
  Sender: FDA-Public Use
  Company Number: PT-MYLANLABS-2021M1065142

PATIENT
  Age: 26 Year
  Sex: Female
  Weight: 52.5 kg

DRUGS (12)
  1. DYMISTA [Suspect]
     Active Substance: AZELASTINE HYDROCHLORIDE\FLUTICASONE PROPIONATE
     Indication: Rhinitis allergic
     Dosage: UNK UNK, BID (DAY, IN THE MORNING AND AT NIGHT)
     Route: 045
     Dates: start: 202009, end: 202101
  2. DYMISTA [Suspect]
     Active Substance: AZELASTINE HYDROCHLORIDE\FLUTICASONE PROPIONATE
     Dosage: UNK UNK, BID (DAY, AT NIGHT (INTERMITTENTLY)
     Route: 045
     Dates: start: 202101, end: 20210916
  3. PANTOPRAZOLE [Concomitant]
     Active Substance: PANTOPRAZOLE
     Indication: Gastric disorder
     Dosage: 1 DOSAGE FORM, QD (LONG TIME AGO)
     Route: 048
  4. PANTOPRAZOLE [Concomitant]
     Active Substance: PANTOPRAZOLE
     Indication: Gastritis
  5. ETHINYL ESTRADIOL\LEVONORGESTREL [Concomitant]
     Active Substance: ETHINYL ESTRADIOL\LEVONORGESTREL
     Indication: Contraception
     Dosage: 1 DOSAGE FORM, QD
     Route: 048
  6. PAROXETINE [Concomitant]
     Active Substance: PAROXETINE
     Indication: Anxiety
     Dosage: 0.5 MILLIGRAM, QD (HALF TABLET)
     Route: 048
     Dates: start: 202107
  7. PAROXETINE [Concomitant]
     Active Substance: PAROXETINE
     Indication: Insomnia
  8. ZOLPIDEM [Concomitant]
     Active Substance: ZOLPIDEM TARTRATE
     Indication: Anxiety
     Dosage: 0.5 MILLIGRAM, QD (HALF OF TABLET)
     Route: 048
     Dates: start: 202107
  9. ZOLPIDEM [Concomitant]
     Active Substance: ZOLPIDEM TARTRATE
     Indication: Insomnia
  10. BUPROPION [Concomitant]
     Active Substance: BUPROPION
     Indication: Anxiety
     Dosage: 1 DOSAGE FORM, QD (LAST WEEK)
     Route: 048
  11. BUPROPION [Concomitant]
     Active Substance: BUPROPION
     Indication: Insomnia
  12. IBUPROFEN [Concomitant]
     Active Substance: IBUPROFEN
     Indication: Migraine
     Dosage: UNK (IN SOS)
     Route: 048

REACTIONS (5)
  - Cataract [Unknown]
  - Myopia [Unknown]
  - Migraine [Unknown]
  - Photosensitivity reaction [Unknown]
  - Visual impairment [Unknown]

NARRATIVE: CASE EVENT DATE: 20210601
